FAERS Safety Report 25731453 (Version 1)
Quarter: 2025Q3

REPORT INFORMATION
  Report Type: Spontaneous
  Country: EG (occurrence: EG)
  Receive Date: 20250827
  Receipt Date: 20250827
  Transmission Date: 20251021
  Serious: Yes (Hospitalization)
  Sender: PFIZER
  Company Number: EG-PFIZER INC-PV202500102618

PATIENT
  Age: 62 Year
  Sex: Female

DRUGS (1)
  1. IBRANCE [Suspect]
     Active Substance: PALBOCICLIB
     Route: 048

REACTIONS (2)
  - Pneumonia [Recovered/Resolved]
  - Skin ulcer [Recovered/Resolved]

NARRATIVE: CASE EVENT DATE: 20250812
